FAERS Safety Report 4391244-6 (Version None)
Quarter: 2004Q2

REPORT INFORMATION
  Report Type: 
  Country: None (occurrence: None)
  Receive Date: 20040621
  Receipt Date: 20031031
  Transmission Date: 20050107
  Serious: Yes (Other)
  Sender: FDA-Public Use
  Company Number: USA-2002-0003360

PATIENT
  Age: 45 Year
  Sex: Female
  Weight: 78 kg

DRUGS (13)
  1. OXYCONTIN [Suspect]
     Indication: PAIN
     Dosage: 20 MG, BID, ORAL
     Route: 048
     Dates: start: 19990824
  2. LORCET-HD [Concomitant]
  3. LOPRESSOR [Concomitant]
  4. SOMA [Concomitant]
  5. XANAX [Concomitant]
  6. COUMADIN [Concomitant]
  7. PROZAC [Concomitant]
  8. ESTRADIOL [Concomitant]
  9. LASIX [Concomitant]
  10. NITROSTAT [Concomitant]
  11. PHENERGAN [Concomitant]
  12. CELEBREX [Concomitant]
  13. MEDROL [Concomitant]

REACTIONS (19)
  - ARTHRALGIA [None]
  - CHEST PAIN [None]
  - DEPRESSION [None]
  - DIARRHOEA [None]
  - DRUG DEPENDENCE [None]
  - DRUG WITHDRAWAL SYNDROME [None]
  - HEADACHE [None]
  - HYPERHIDROSIS [None]
  - HYPOAESTHESIA [None]
  - INSOMNIA [None]
  - IRRITABILITY [None]
  - MUSCLE SPASMS [None]
  - NAUSEA [None]
  - NERVOUSNESS [None]
  - OEDEMA PERIPHERAL [None]
  - PAIN IN EXTREMITY [None]
  - PARAESTHESIA [None]
  - TREMOR [None]
  - VOMITING [None]
